FAERS Safety Report 12154927 (Version 1)
Quarter: 2016Q1

REPORT INFORMATION
  Report Type: Spontaneous
  Country: US (occurrence: None)
  Receive Date: 20160304
  Receipt Date: 20160304
  Transmission Date: 20160526
  Serious: No
  Sender: FDA-Public Use
  Company Number: None

PATIENT
  Age: 62 Year
  Sex: Female

DRUGS (7)
  1. HYDROCO/APAP [Concomitant]
     Active Substance: ACETAMINOPHEN\HYDROCODONE
  2. FOLIC ACID. [Concomitant]
     Active Substance: FOLIC ACID
  3. AMOX/E CLAV [Concomitant]
  4. XELJANZ [Suspect]
     Active Substance: TOFACITINIB CITRATE
     Indication: RHEUMATOID ARTHRITIS
     Route: 048
     Dates: start: 20141122
  5. ETODOLAC. [Concomitant]
     Active Substance: ETODOLAC
  6. GABAPENTIN. [Concomitant]
     Active Substance: GABAPENTIN
  7. ALENDRONATE [Concomitant]
     Active Substance: ALENDRONATE SODIUM

REACTIONS (2)
  - Vision blurred [None]
  - Photophobia [None]

NARRATIVE: CASE EVENT DATE: 201602
